FAERS Safety Report 9781721 (Version 1)
Quarter: 2013Q4

REPORT INFORMATION
  Report Type: Spontaneous
  Country: GB (occurrence: GB)
  Receive Date: 20131224
  Receipt Date: 20131224
  Transmission Date: 20140711
  Serious: Yes (Other)
  Sender: FDA-Public Use
  Company Number: GB-WATSON-2013-23124

PATIENT
  Age: 82 Year
  Sex: Female

DRUGS (4)
  1. ALENDRONATE SODIUM- (UNKNOWN) [Suspect]
     Indication: OSTEOPOROSIS
     Dosage: 70 MG, 1/WEEK
     Route: 048
  2. HYDROXYCARBAMIDE [Concomitant]
     Indication: POLYCYTHAEMIA VERA
     Dosage: 500 MG, 3 DAYS/WEEK
     Route: 065
  3. HYDROXYCARBAMIDE [Concomitant]
     Dosage: 1 G, THE REMAINING 4 DAYS/WEEK
     Route: 065
  4. ASPIRIN [Concomitant]
     Indication: POLYCYTHAEMIA VERA
     Dosage: 75 MG, DAILY
     Route: 065

REACTIONS (1)
  - Osteonecrosis of jaw [Recovered/Resolved]
